FAERS Safety Report 6466117-5 (Version None)
Quarter: 2009Q4

REPORT INFORMATION
  Report Type: 
  Country: None (occurrence: None)
  Receive Date: 20091201
  Receipt Date: 20091201
  Transmission Date: 20100525
  Serious: Yes (Life-Threatening)
  Sender: FDA-Public Use
  Company Number: None

PATIENT
  Age: 46 Year
  Sex: Male
  Weight: 68.9467 kg

DRUGS (1)
  1. LEVOTHYROXINE SODIUM [Suspect]
     Indication: THYROID FUNCTION TEST ABNORMAL
     Dosage: 125 MCG 1 PER DAY 047

REACTIONS (2)
  - OEDEMA MOUTH [None]
  - SWOLLEN TONGUE [None]
